FAERS Safety Report 26078382 (Version 3)
Quarter: 2025Q4

REPORT INFORMATION
  Report Type: Spontaneous
  Country: JP (occurrence: JP)
  Receive Date: 20251122
  Receipt Date: 20251229
  Transmission Date: 20260117
  Serious: Yes (Other)
  Sender: AMGEN
  Company Number: JP-AMGEN-JPNSP2025228582

PATIENT
  Age: 6 Decade
  Sex: Female

DRUGS (4)
  1. TEPEZZA [Suspect]
     Active Substance: TEPROTUMUMAB-TRBW
     Indication: Endocrine ophthalmopathy
     Dosage: 10 MILLIGRAM/KILOGRAM (1ST DOSE) (INTRAVENOUS DRIP INFUSION)
     Route: 040
     Dates: start: 20251006
  2. TEPEZZA [Suspect]
     Active Substance: TEPROTUMUMAB-TRBW
     Dosage: 20 MILLIGRAM/KILOGRAM (2ND DOSE) (FURTHER, 8 DOSES IN TOTAL) (INTRAVENOUS DRIP INFUSION)
     Route: 040
     Dates: start: 20251027
  3. TEPEZZA [Suspect]
     Active Substance: TEPROTUMUMAB-TRBW
     Dosage: 20 MILLIGRAM/KILOGRAM (THIRD DOSE)
     Route: 040
     Dates: start: 20251117
  4. CARBIMAZOLE [Suspect]
     Active Substance: CARBIMAZOLE
     Indication: Graves^ disease
     Dosage: UNK
     Route: 065

REACTIONS (6)
  - Hypothyroidism [Recovered/Resolved]
  - Alopecia [Not Recovered/Not Resolved]
  - Dry skin [Not Recovered/Not Resolved]
  - Infusion site haemorrhage [Recovered/Resolved]
  - Infusion site bruising [Not Recovered/Not Resolved]
  - Amenorrhoea [Not Recovered/Not Resolved]

NARRATIVE: CASE EVENT DATE: 20251011
